FAERS Safety Report 15283091 (Version 1)
Quarter: 2018Q3

REPORT INFORMATION
  Report Type: Spontaneous
  Country: FR (occurrence: FR)
  Receive Date: 20180816
  Receipt Date: 20180816
  Transmission Date: 20181010
  Serious: Yes (Other)
  Sender: FDA-Public Use
  Company Number: FR-TEVA-2018-FR-941563

PATIENT
  Age: 70 Year
  Sex: Female
  Weight: 62 kg

DRUGS (2)
  1. GEMCITABINE [Suspect]
     Active Substance: GEMCITABINE\GEMCITABINE HYDROCHLORIDE
     Indication: T-CELL LYMPHOMA
     Dosage: 1680 MILLIGRAM DAILY;
     Route: 041
     Dates: start: 20180328, end: 20180530
  2. OXALIPLATINE [Suspect]
     Active Substance: OXALIPLATIN
     Indication: T-CELL LYMPHOMA
     Dosage: 170 MILLIGRAM DAILY;
     Route: 041
     Dates: start: 20180328, end: 20180530

REACTIONS (4)
  - Vomiting [Recovering/Resolving]
  - Pyrexia [Recovering/Resolving]
  - Diarrhoea [Recovering/Resolving]
  - Rash [Recovering/Resolving]

NARRATIVE: CASE EVENT DATE: 20180408
